FAERS Safety Report 4505782-6 (Version None)
Quarter: 2004Q4

REPORT INFORMATION
  Report Type: 
  Country: None (occurrence: None)
  Receive Date: 20041025
  Receipt Date: 20040210
  Transmission Date: 20050328
  Serious: Yes (Disabling)
  Sender: FDA-Public Use
  Company Number: US-JNJFOC-20031202944

PATIENT
  Age: 47 Year
  Sex: Female
  Weight: 104.3273 kg

DRUGS (7)
  1. REMICADE [Suspect]
     Indication: CROHN'S DISEASE
     Dosage: 5 MG/KG, 1 IN 1 TOTAL, INTRAVENOUS
     Route: 042
     Dates: start: 20031023, end: 20031023
  2. PURINETHOL [Concomitant]
  3. LISINOPRIL [Concomitant]
  4. IMURAN [Concomitant]
  5. MEPRAMINE (ALL OTHER THERAPEUTIC PRODUCTS) [Concomitant]
  6. IMODIUM [Concomitant]
  7. ZETIA (EZETIMIBE) (CHOLESTEROL-AND TRIGLYCERIDE REDUCERS) [Concomitant]

REACTIONS (1)
  - OPTIC NEURITIS [None]
